FAERS Safety Report 14524340 (Version 8)
Quarter: 2019Q1

REPORT INFORMATION
  Report Type: Spontaneous
  Country: US (occurrence: US)
  Receive Date: 20180213
  Receipt Date: 20190214
  Transmission Date: 20190417
  Serious: No
  Sender: FDA-Public Use
  Company Number: US-PFIZER INC-2018061679

PATIENT
  Age: 63 Year
  Sex: Male
  Weight: 112 kg

DRUGS (14)
  1. LYRICA [Suspect]
     Active Substance: PREGABALIN
     Indication: NEUROPATHY PERIPHERAL
     Dosage: 150 MG, TWO DURING THE DAY AND ONE AT NIGHT
  2. CITALOPRAM [Concomitant]
     Active Substance: CITALOPRAM HYDROBROMIDE
     Dosage: 40 MG, 1X/DAY
     Route: 048
  3. LYRICA [Suspect]
     Active Substance: PREGABALIN
     Indication: BURNING SENSATION
     Dosage: 450 MG, DAILY (THREE 150MG CAPSULES DAILY )
  4. SYMBICORT [Concomitant]
     Active Substance: BUDESONIDE\FORMOTEROL FUMARATE DIHYDRATE
     Indication: CHRONIC OBSTRUCTIVE PULMONARY DISEASE
     Dosage: UNK, DAILY (BUDESONIDE 160MCG FORMOTEROL FUMARATE DIHYDRATE 4.5MCG-2 PUFFS INHALED EACH DAY)
     Route: 055
     Dates: start: 2013
  5. LYRICA [Suspect]
     Active Substance: PREGABALIN
     Dosage: 150 MG, DAILY (TAKING TWO 75MG CAPSULES)
  6. AMLODIPINE [Concomitant]
     Active Substance: AMLODIPINE BESYLATE
     Indication: BLOOD PRESSURE ABNORMAL
     Dosage: 10 MG, 1X/DAY
     Route: 048
  7. LYRICA [Suspect]
     Active Substance: PREGABALIN
     Indication: LUMBAR RADICULOPATHY
     Dosage: UNK, 1X/DAY
  8. LYRICA [Suspect]
     Active Substance: PREGABALIN
     Indication: LUMBAR SPINAL STENOSIS
     Dosage: 300 MG, DAILY (150MG TWO CAPSULES)
     Route: 048
  9. OXYCODONE [Concomitant]
     Active Substance: OXYCODONE
     Indication: BACK DISORDER
     Dosage: UNK
  10. LYRICA [Suspect]
     Active Substance: PREGABALIN
     Dosage: 150 MG, 3X/DAY (1 CAPSULE THREE TIMES PER DAY)
     Route: 048
  11. SPIRIVA [Concomitant]
     Active Substance: TIOTROPIUM BROMIDE MONOHYDRATE
     Indication: CHRONIC OBSTRUCTIVE PULMONARY DISEASE
     Dosage: 2.3 UG, DAILY (2.3MCG-2 PUFFS INHALED DAILY)
  12. LYRICA [Suspect]
     Active Substance: PREGABALIN
     Dosage: 150 MG, TWICE A DAY (THREE 50MG CAPSULES TWICE A DAY)
  13. FARXIGA [Concomitant]
     Active Substance: DAPAGLIFLOZIN PROPANEDIOL
     Indication: BLOOD GLUCOSE INCREASED
     Dosage: UNK
  14. CITALOPRAM [Concomitant]
     Active Substance: CITALOPRAM HYDROBROMIDE
     Indication: DEPRESSION
     Dosage: 30 MG, UNK

REACTIONS (7)
  - Influenza [Recovering/Resolving]
  - Asthenia [Unknown]
  - Sinus disorder [Unknown]
  - Insomnia [Unknown]
  - Nasopharyngitis [Recovering/Resolving]
  - Intentional product misuse [Unknown]
  - Malaise [Unknown]

NARRATIVE: CASE EVENT DATE: 2018
